FAERS Safety Report 9703989 (Version 3)
Quarter: 2014Q2

REPORT INFORMATION
  Report Type: Report from Study
  Country: GB (occurrence: GB)
  Receive Date: 20131122
  Receipt Date: 20140526
  Transmission Date: 20141212
  Serious: Yes (Hospitalization)
  Sender: FDA-Public Use
  Company Number: GB-PFIZER INC-2013330779

PATIENT
  Age: 50 Year
  Sex: Male
  Weight: 81 kg

DRUGS (5)
  1. CRIZOTINIB [Suspect]
     Indication: LUNG NEOPLASM MALIGNANT
     Dosage: 500 MG, DAILY
     Route: 048
     Dates: start: 20120814, end: 20131029
  2. CISPLATIN [Suspect]
     Indication: LUNG NEOPLASM MALIGNANT
     Dosage: 159 MG, EVERY 3 WEEKS (21 DAYS)
     Route: 042
     Dates: start: 20131106
  3. PEMETREXED [Suspect]
     Indication: LUNG NEOPLASM MALIGNANT
     Dosage: 1050 MG, EVERY 3 WEEKS (21 DAYS)
     Route: 042
     Dates: start: 20131106
  4. VITAMIN B12 [Concomitant]
  5. DEXAMETHASONE [Concomitant]

REACTIONS (2)
  - Dyspnoea [Not Recovered/Not Resolved]
  - Neutropenic sepsis [Recovered/Resolved]
